FAERS Safety Report 6121591-9 (Version None)
Quarter: 2009Q1

REPORT INFORMATION
  Report Type: 
  Country: None (occurrence: None)
  Receive Date: 20090317
  Receipt Date: 20090304
  Transmission Date: 20090719
  Serious: Yes (Hospitalization)
  Sender: FDA-Public Use
  Company Number: JP-ABBOTT-09P-087-0562626-00

PATIENT
  Age: 80 Year
  Sex: Male

DRUGS (11)
  1. LEUPLIN SR FOR INJECTION 11.25 MG [Suspect]
     Indication: PROSTATE CANCER STAGE III
     Route: 058
     Dates: start: 20060621, end: 20071205
  2. LEUPLIN SR FOR INJECTION 11.25 MG [Suspect]
     Dates: start: 20060222, end: 20060517
  3. ACTOS [Concomitant]
     Indication: DIABETES MELLITUS
     Route: 048
  4. CASODEX [Concomitant]
     Indication: PROSTATE CANCER STAGE III
     Route: 048
     Dates: end: 20061129
  5. ADALAT [Concomitant]
     Indication: HYPERTENSION
     Route: 048
     Dates: end: 20070826
  6. EUGLUCON [Concomitant]
     Indication: DIABETES MELLITUS
     Route: 048
     Dates: end: 20070826
  7. INTENACIN [Concomitant]
     Indication: ARTHRALGIA
     Route: 062
  8. STICK ZENOL [Concomitant]
     Indication: ARTHRALGIA
     Route: 062
  9. CORINAEL [Concomitant]
     Indication: HYPERTENSION
     Route: 048
     Dates: start: 20070827
  10. GLYBURIDE [Concomitant]
     Indication: DIABETES MELLITUS
     Route: 048
     Dates: start: 20070827
  11. GLUCOBAY [Concomitant]
     Indication: DIABETES MELLITUS
     Route: 048
     Dates: start: 20070828, end: 20070902

REACTIONS (2)
  - COLON CANCER [None]
  - INJECTION SITE INDURATION [None]
